FAERS Safety Report 15939228 (Version 2)
Quarter: 2019Q1

REPORT INFORMATION
  Report Type: Spontaneous
  Country: CN (occurrence: CN)
  Receive Date: 20190208
  Receipt Date: 20190213
  Transmission Date: 20190417
  Serious: Yes (Hospitalization)
  Sender: FDA-Public Use
  Company Number: CN-009507513-1902CHN001918

PATIENT
  Age: 22 Year
  Sex: Female

DRUGS (1)
  1. DIPROSPAN [Suspect]
     Active Substance: BETAMETHASONE DIPROPIONATE\BETAMETHASONE SODIUM PHOSPHATE
     Indication: FURUNCLE
     Dosage: 1 MILLILITER, QD
     Route: 030
     Dates: start: 20180728, end: 20180728

REACTIONS (1)
  - Anaphylactoid reaction [Recovering/Resolving]

NARRATIVE: CASE EVENT DATE: 20180728
